FAERS Safety Report 4598267-2 (Version None)
Quarter: 2005Q1

REPORT INFORMATION
  Report Type: 
  Country: None (occurrence: None)
  Receive Date: 20050304
  Receipt Date: 20050303
  Transmission Date: 20050727
  Serious: Yes (Other)
  Sender: FDA-Public Use
  Company Number: DE-GLAXOSMITHKLINE-D0046029A

PATIENT
  Age: 76 Year
  Sex: Male

DRUGS (4)
  1. REQUIP [Suspect]
     Indication: PARKINSON'S DISEASE
     Dosage: 1.5MG THREE TIMES PER DAY
     Route: 065
     Dates: start: 20041201, end: 20050201
  2. STALEVO 100 [Concomitant]
     Dosage: 1U THREE TIMES PER DAY
     Route: 065
  3. EXELON [Concomitant]
     Dosage: 1.5MG TWICE PER DAY
     Route: 065
  4. MADOPAR [Concomitant]
     Dosage: 1U AT NIGHT
     Route: 065

REACTIONS (2)
  - ABNORMAL BEHAVIOUR [None]
  - LIBIDO INCREASED [None]
